FAERS Safety Report 4554085-2 (Version None)
Quarter: 2005Q1

REPORT INFORMATION
  Report Type: 
  Country: None (occurrence: None)
  Receive Date: 20050118
  Receipt Date: 20041112
  Transmission Date: 20050727
  Serious: Yes (Life-Threatening, Hospitalization, Disabling, Other)
  Sender: FDA-Public Use
  Company Number: US-MERCK-0411USA02381

PATIENT
  Age: 49 Year
  Sex: Female
  Weight: 113 kg

DRUGS (19)
  1. VIOXX [Suspect]
     Indication: MONARTHRITIS
     Route: 048
     Dates: start: 20020215, end: 20020520
  2. [THERAPY UNSPECIFIED] [Concomitant]
     Indication: DEPRESSION
     Route: 065
  3. TRAZODONE HYDROCHLORIDE [Concomitant]
     Route: 065
  4. ELAVIL [Concomitant]
     Route: 065
  5. CLONAZEPAM [Concomitant]
     Route: 065
  6. LEVOXYL [Concomitant]
     Route: 065
  7. GLUCOPHAGE [Concomitant]
     Route: 065
  8. GLUCOTROL [Concomitant]
     Route: 065
  9. PREMARIN [Concomitant]
     Route: 065
  10. VITAMINS (UNSPECIFIED) [Concomitant]
     Route: 065
  11. ASPIRIN [Concomitant]
     Route: 065
  12. AVANDIA [Concomitant]
     Route: 065
  13. PROTONIX [Concomitant]
     Route: 065
  14. VALIUM [Concomitant]
     Route: 065
  15. LIPITOR [Concomitant]
     Route: 065
  16. NEURONTIN [Concomitant]
     Route: 065
  17. METHADONE HCL [Concomitant]
     Route: 065
  18. HYDRODIURIL [Concomitant]
     Route: 065
     Dates: end: 20020601
  19. UNIVASC [Concomitant]
     Route: 065
     Dates: end: 20020701

REACTIONS (4)
  - BLOOD PRESSURE INCREASED [None]
  - DEEP VEIN THROMBOSIS [None]
  - RENAL FAILURE ACUTE [None]
  - WEIGHT DECREASED [None]
